FAERS Safety Report 8346554-4 (Version None)
Quarter: 2012Q2

REPORT INFORMATION
  Report Type: 
  Country: None (occurrence: None)
  Receive Date: 20120509
  Receipt Date: 20120430
  Transmission Date: 20120825
  Serious: Yes (Hospitalization, Other)
  Sender: FDA-Public Use
  Company Number: PHEH2012US008964

PATIENT
  Sex: Female

DRUGS (6)
  1. ASPIRIN [Concomitant]
     Dosage: 81 MG, QD
     Dates: start: 20110930
  2. HYDROCODONE BITARTRATE + ACETAMINOPHEN [Concomitant]
     Dosage: 1 DF, TID
     Dates: start: 20110930
  3. BENZONATATE [Concomitant]
     Dosage: 1 DF, QID
     Route: 048
     Dates: start: 20110930
  4. GILENYA [Suspect]
     Indication: MULTIPLE SCLEROSIS
     Dosage: 0.5 MG, QD
     Route: 048
     Dates: start: 20120426
  5. CLARINEX [Concomitant]
     Dosage: 1 DF, QD
     Route: 048
     Dates: start: 20110930
  6. ZOMIG [Concomitant]
     Indication: HEADACHE
     Dosage: 1 DF, UNK
     Route: 048
     Dates: start: 20110930

REACTIONS (8)
  - ATRIOVENTRICULAR BLOCK SECOND DEGREE [None]
  - DYSPNOEA [None]
  - ELECTROCARDIOGRAM ST SEGMENT ELEVATION [None]
  - DIZZINESS [None]
  - HEART RATE DECREASED [None]
  - PERICARDITIS [None]
  - BLOOD PRESSURE DECREASED [None]
  - SUPRAVENTRICULAR EXTRASYSTOLES [None]
